FAERS Safety Report 6693817-4 (Version None)
Quarter: 2010Q2

REPORT INFORMATION
  Report Type: 
  Country: None (occurrence: None)
  Receive Date: 20100423
  Receipt Date: 20100413
  Transmission Date: 20101027
  Serious: Yes (Other)
  Sender: FDA-Public Use
  Company Number: ES-B.I. PHARMACEUTICALS,INC./RIDGEFIELD-2010-DE-02120GD

PATIENT
  Sex: Male

DRUGS (2)
  1. DULCOLAX [Suspect]
     Indication: BOWEL PREPARATION
     Dosage: 20 - 30 MG
  2. POLYETHYLENE GLYCOL [Concomitant]
     Indication: BOWEL PREPARATION
     Dosage: 2 L
     Route: 048

REACTIONS (6)
  - ABDOMINAL PAIN [None]
  - COLITIS ISCHAEMIC [None]
  - DISEASE RECURRENCE [None]
  - HAEMATOCHEZIA [None]
  - LARGE INTESTINAL ULCER [None]
  - SUBCUTANEOUS HAEMATOMA [None]
